FAERS Safety Report 6125179-5 (Version None)
Quarter: 2009Q1

REPORT INFORMATION
  Report Type: 
  Country: None (occurrence: None)
  Receive Date: 20090318
  Receipt Date: 20090305
  Transmission Date: 20090719
  Serious: Yes (Life-Threatening, Other)
  Sender: FDA-Public Use
  Company Number: 232019K09USA

PATIENT
  Age: 53 Year
  Sex: Female
  Weight: 88 kg

DRUGS (5)
  1. REBIF [Suspect]
     Indication: MULTIPLE SCLEROSIS
     Dosage: 44 MCG, 3 IN 1 WEEKS, SUBCUTANEOUS
     Route: 058
     Dates: start: 20071119, end: 20081001
  2. SIMVASTATIN [Concomitant]
  3. ZYRTEC [Concomitant]
  4. LEVOXYL [Concomitant]
  5. EFFEXOR [Concomitant]

REACTIONS (3)
  - BREAST CANCER FEMALE [None]
  - CONNECTIVE TISSUE DISORDER [None]
  - UPPER RESPIRATORY TRACT INFECTION [None]
